FAERS Safety Report 15043525 (Version 1)
Quarter: 2018Q2

REPORT INFORMATION
  Report Type: Spontaneous
  Country: US (occurrence: US)
  Receive Date: 20180621
  Receipt Date: 20180621
  Transmission Date: 20180711
  Serious: Yes (Death)
  Sender: FDA-Public Use
  Company Number: US-BEH-2018091972

PATIENT
  Age: 87 Year
  Sex: Female
  Weight: 56.69 kg

DRUGS (4)
  1. LIPITOR [Concomitant]
     Active Substance: ATORVASTATIN CALCIUM
  2. PRIVIGEN [Suspect]
     Active Substance: HUMAN IMMUNOGLOBULIN G
     Indication: SELECTIVE IGA IMMUNODEFICIENCY
     Dosage: UNK
     Route: 065
  3. PRIVIGEN [Suspect]
     Active Substance: HUMAN IMMUNOGLOBULIN G
     Dosage: 10 G, AS DIRECTED
     Route: 065
     Dates: start: 20150817, end: 20180619
  4. NEXIUM [Concomitant]
     Active Substance: ESOMEPRAZOLE MAGNESIUM

REACTIONS (1)
  - Death [Fatal]
